FAERS Safety Report 9947448 (Version 1)
Quarter: 2014Q1

REPORT INFORMATION
  Report Type: Report from Study
  Country: US (occurrence: US)
  Receive Date: 20140303
  Receipt Date: 20140303
  Transmission Date: 20141002
  Serious: No
  Sender: FDA-Public Use
  Company Number: US-ABBVIE-13P-163-1062346-00

PATIENT
  Sex: Female
  Weight: 90.8 kg

DRUGS (15)
  1. HUMIRA [Suspect]
     Indication: PSORIASIS
     Dates: start: 2005, end: 2009
  2. HUMIRA [Suspect]
     Indication: PSORIATIC ARTHROPATHY
     Dates: start: 2009
  3. HUMIRA [Suspect]
     Indication: RHEUMATOID ARTHRITIS
  4. METHOTREXATE [Concomitant]
     Indication: PSORIASIS
  5. METHOTREXATE [Concomitant]
     Indication: PSORIATIC ARTHROPATHY
  6. METHOTREXATE [Concomitant]
     Indication: RHEUMATOID ARTHRITIS
  7. PREDNISONE [Concomitant]
     Indication: PRODUCT USED FOR UNKNOWN INDICATION
  8. SUMATRIPTAN [Concomitant]
     Indication: MIGRAINE
  9. LEVOTHYRINE [Concomitant]
     Indication: THYROID DISORDER
  10. GABAPENTIN [Concomitant]
     Indication: MUSCLE SPASMS
  11. GABAPENTIN [Concomitant]
     Indication: PERIODIC LIMB MOVEMENT DISORDER
  12. GABAPENTIN [Concomitant]
     Indication: RESTLESS LEGS SYNDROME
  13. EFFEXOR [Concomitant]
     Indication: DEPRESSION
  14. XANAX [Concomitant]
     Indication: ANXIETY
  15. FOLIC ACID [Concomitant]
     Indication: VITAMIN SUPPLEMENTATION

REACTIONS (2)
  - Arthralgia [Recovered/Resolved]
  - Psoriasis [Recovered/Resolved]
